FAERS Safety Report 5082347-1 (Version None)
Quarter: 2006Q3

REPORT INFORMATION
  Report Type: 
  Country: None (occurrence: None)
  Receive Date: 20060817
  Receipt Date: 20060809
  Transmission Date: 20061208
  Serious: Yes (Hospitalization)
  Sender: FDA-Public Use
  Company Number: FR-AVENTIS-200612806FR

PATIENT
  Age: 81 Year
  Sex: Female
  Weight: 65 kg

DRUGS (2)
  1. LASILIX 40 MG [Suspect]
     Indication: OEDEMA PERIPHERAL
     Route: 048
     Dates: start: 20060123, end: 20060131
  2. SOLUPRED [Concomitant]
     Indication: BACK PAIN
     Route: 048

REACTIONS (4)
  - BLOOD CREATININE INCREASED [None]
  - DIZZINESS [None]
  - MALAISE [None]
  - RENAL FAILURE ACUTE [None]
